FAERS Safety Report 5652180-8 (Version None)
Quarter: 2008Q1

REPORT INFORMATION
  Report Type: 
  Country: None (occurrence: None)
  Receive Date: 20080304
  Receipt Date: 20080228
  Transmission Date: 20080703
  Serious: Yes (Death)
  Sender: FDA-Public Use
  Company Number: 2007SP025105

PATIENT
  Age: 70 Year
  Sex: Female

DRUGS (6)
  1. TEMODAL [Suspect]
     Indication: GLIOBLASTOMA
     Dosage: 100 MG; QD; PO
     Route: 048
     Dates: start: 20071005, end: 20071118
  2. ZONISAMIDE [Concomitant]
  3. GLYBURIDE [Concomitant]
  4. AMLODIN [Concomitant]
  5. TAKEPRON OC [Concomitant]
  6. NITRAZEPAM [Concomitant]

REACTIONS (4)
  - CYTOMEGALOVIRUS TEST POSITIVE [None]
  - GENERAL PHYSICAL HEALTH DETERIORATION [None]
  - ORAL INTAKE REDUCED [None]
  - PNEUMOCYSTIS JIROVECI PNEUMONIA [None]
